FAERS Safety Report 17264426 (Version 1)
Quarter: 2020Q1

REPORT INFORMATION
  Report Type: Spontaneous
  Country: US (occurrence: US)
  Receive Date: 20200113
  Receipt Date: 20200113
  Transmission Date: 20200409
  Serious: No
  Sender: FDA-Public Use
  Company Number: US-BAYER-2019-238025

PATIENT
  Age: 58 Year
  Sex: Female
  Weight: 53.98 kg

DRUGS (1)
  1. CIPRO [Suspect]
     Active Substance: CIPROFLOXACIN HYDROCHLORIDE
     Indication: URINARY TRACT INFECTION
     Dosage: UNK

REACTIONS (5)
  - Oral pain [Recovered/Resolved]
  - Paraesthesia [None]
  - Thermal burn [Recovered/Resolved]
  - Erythema [Recovered/Resolved]
  - Lip disorder [Recovered/Resolved]
